FAERS Safety Report 4986019-0 (Version None)
Quarter: 2006Q1

REPORT INFORMATION
  Report Type: 
  Country: None (occurrence: None)
  Receive Date: 20060309
  Receipt Date: 20051227
  Transmission Date: 20060701
  Serious: Yes (Other)
  Sender: FDA-Public Use
  Company Number: 430219

PATIENT
  Sex: Male

DRUGS (2)
  1. ACCUTANE [Suspect]
     Indication: DRUG USE FOR UNKNOWN INDICATION
     Dosage: ORAL
     Route: 048
  2. .. [Concomitant]

REACTIONS (3)
  - AUTOIMMUNE DISORDER [None]
  - INFLAMMATORY BOWEL DISEASE [None]
  - UNEVALUABLE EVENT [None]
